FAERS Safety Report 7488472-X (Version None)
Quarter: 2011Q2

REPORT INFORMATION
  Report Type: 
  Country: None (occurrence: None)
  Receive Date: 20110518
  Receipt Date: 20110504
  Transmission Date: 20111010
  Serious: Yes (Other)
  Sender: FDA-Public Use
  Company Number: GB-JNJFOC-20110502151

PATIENT
  Age: 41 Year
  Sex: Female

DRUGS (2)
  1. REMICADE [Suspect]
     Route: 042
     Dates: start: 20110503
  2. REMICADE [Suspect]
     Indication: PRODUCT USED FOR UNKNOWN INDICATION
     Route: 042
     Dates: start: 20110503

REACTIONS (6)
  - NAUSEA [None]
  - PAIN [None]
  - INFUSION RELATED REACTION [None]
  - CHEST DISCOMFORT [None]
  - DYSPNOEA [None]
  - ADVERSE EVENT [None]
